FAERS Safety Report 6827274-1 (Version None)
Quarter: 2010Q3

REPORT INFORMATION
  Report Type: 
  Country: None (occurrence: None)
  Receive Date: 20100709
  Receipt Date: 20100628
  Transmission Date: 20110219
  Serious: Yes (Other)
  Sender: FDA-Public Use
  Company Number: SE-WATSON-2010-08987

PATIENT
  Sex: Male

DRUGS (1)
  1. SIMVASTATIN (WATSON LABORATORIES) [Suspect]
     Indication: LIPIDS INCREASED
     Dosage: UNK
     Dates: end: 20090707

REACTIONS (2)
  - TENDON DISORDER [None]
  - TENDON RUPTURE [None]
